FAERS Safety Report 21795722 (Version 1)
Quarter: 2022Q4

REPORT INFORMATION
  Report Type: Report from Study
  Country: NL (occurrence: NL)
  Receive Date: 20221229
  Receipt Date: 20221229
  Transmission Date: 20230113
  Serious: Yes (Life-Threatening, Other)
  Sender: FDA-Public Use
  Company Number: NL-ABBVIE-4251872

PATIENT
  Age: 81 Year
  Sex: Male

DRUGS (3)
  1. CARBIDOPA\LEVODOPA [Suspect]
     Active Substance: CARBIDOPA\LEVODOPA
     Indication: Parkinson^s disease
     Route: 050
  2. CARBIDOPA\LEVODOPA [Suspect]
     Active Substance: CARBIDOPA\LEVODOPA
     Dosage: MD:7.5ML; CD:3.2ML/H; ED:3.0ML;?DURATION TEXT: REMAINS AT 16 HOURS
     Route: 050
  3. CLOZAPINE [Concomitant]
     Active Substance: CLOZAPINE
     Indication: Hallucination

REACTIONS (4)
  - Terminal state [Not Recovered/Not Resolved]
  - Musculoskeletal stiffness [Unknown]
  - Unresponsive to stimuli [Unknown]
  - Device dislocation [Unknown]

NARRATIVE: CASE EVENT DATE: 20221201
